FAERS Safety Report 17075464 (Version 1)
Quarter: 2019Q4

REPORT INFORMATION
  Report Type: Spontaneous
  Country: US (occurrence: US)
  Receive Date: 20191125
  Receipt Date: 20191125
  Transmission Date: 20200122
  Serious: Yes (Hospitalization)
  Sender: FDA-Public Use
  Company Number: None

PATIENT
  Age: 57 Year
  Sex: Male

DRUGS (7)
  1. TAMSULOSIN [Concomitant]
     Active Substance: TAMSULOSIN
  2. WARFARIN [Concomitant]
     Active Substance: WARFARIN
  3. LOSARTAN. [Concomitant]
     Active Substance: LOSARTAN
  4. COUMADIN [Concomitant]
     Active Substance: WARFARIN SODIUM
  5. TACROLIMUS. [Suspect]
     Active Substance: TACROLIMUS
     Indication: RENAL TRANSPLANT
     Route: 048
     Dates: start: 20150715
  6. SEVELAMER [Concomitant]
     Active Substance: SEVELAMER
  7. ALLOPURINOL. [Concomitant]
     Active Substance: ALLOPURINOL

REACTIONS (1)
  - Dialysis [None]
